FAERS Safety Report 13495731 (Version 3)
Quarter: 2017Q2

REPORT INFORMATION
  Report Type: Spontaneous
  Country: NL (occurrence: NL)
  Receive Date: 20170428
  Receipt Date: 20170509
  Transmission Date: 20170830
  Serious: Yes (Hospitalization, Other)
  Sender: FDA-Public Use
  Company Number: NL-009507513-1999-07-0028

PATIENT
  Age: 11 Year
  Sex: Female

DRUGS (4)
  1. ALBUTEROL SULFATE. [Suspect]
     Active Substance: ALBUTEROL SULFATE
     Indication: SEIZURE
     Dosage: UNK
     Route: 048
     Dates: start: 19990503, end: 19990503
  2. CLARITINE [Suspect]
     Active Substance: LORATADINE
     Indication: SEIZURE
     Dosage: 10 MG, QD
     Route: 048
     Dates: start: 19990503, end: 19990503
  3. CROMOLYN SODIUM. [Concomitant]
     Active Substance: CROMOLYN SODIUM
     Dosage: UNK
     Route: 045
     Dates: start: 19990503, end: 19990503
  4. CLARITINE [Suspect]
     Active Substance: LORATADINE
     Indication: PRODUCT USED FOR UNKNOWN INDICATION

REACTIONS (3)
  - Muscle spasms [Recovered/Resolved]
  - Loss of consciousness [Recovered/Resolved]
  - Epilepsy [Recovered/Resolved]

NARRATIVE: CASE EVENT DATE: 19990503
